FAERS Safety Report 12788928 (Version 1)
Quarter: 2016Q3

REPORT INFORMATION
  Report Type: Spontaneous
  Country: US (occurrence: US)
  Receive Date: 20160928
  Receipt Date: 20160928
  Transmission Date: 20161109
  Serious: No
  Sender: FDA-Public Use
  Company Number: US-BAYER-2016-182813

PATIENT
  Age: 5 Year
  Sex: Female
  Weight: 23.58 kg

DRUGS (2)
  1. CHILDREN CLARITIN ALLERGY [Suspect]
     Active Substance: LORATADINE
     Indication: HYPERSENSITIVITY
     Dosage: 1 DF, UNK
     Route: 048
     Dates: start: 2015, end: 201605
  2. CHILDREN CLARITIN ALLERGY [Suspect]
     Active Substance: LORATADINE
     Indication: NASOPHARYNGITIS
     Dosage: 1 DF, UNK
     Route: 048
     Dates: start: 2015, end: 201605

REACTIONS (2)
  - Rash [Recovered/Resolved with Sequelae]
  - Urticaria [None]

NARRATIVE: CASE EVENT DATE: 201605
